FAERS Safety Report 17718211 (Version 1)
Quarter: 2020Q2

REPORT INFORMATION
  Report Type: Spontaneous
  Country: DE (occurrence: DE)
  Receive Date: 20200428
  Receipt Date: 20200428
  Transmission Date: 20200714
  Serious: Yes (Hospitalization, Other)
  Sender: FDA-Public Use
  Company Number: DE-PFIZER INC-2020164806

PATIENT
  Age: 42 Year
  Sex: Female

DRUGS (6)
  1. LORAZEPAM. [Suspect]
     Active Substance: LORAZEPAM
     Dosage: UNK
  2. LITHIUM. [Suspect]
     Active Substance: LITHIUM
     Dosage: UNK
  3. AMISULPRID [Suspect]
     Active Substance: AMISULPRIDE
     Dosage: 200 MG, 1X/DAY
  4. PERAZINE [Suspect]
     Active Substance: PERAZINE
     Dosage: 100 MG, 1X/DAY
  5. PREGABALIN. [Suspect]
     Active Substance: PREGABALIN
     Dosage: 400 MG, 1X/DAY
  6. DULOXETINE. [Suspect]
     Active Substance: DULOXETINE
     Dosage: 90 MG, 1X/DAY

REACTIONS (1)
  - Drug-induced liver injury [Unknown]
